FAERS Safety Report 6156349-8 (Version None)
Quarter: 2009Q2

REPORT INFORMATION
  Report Type: 
  Country: None (occurrence: None)
  Receive Date: 20090415
  Receipt Date: 20090331
  Transmission Date: 20091009
  Serious: Yes (Hospitalization)
  Sender: FDA-Public Use
  Company Number: DE-GENENTECH-280501

PATIENT
  Sex: Female

DRUGS (5)
  1. TRASTUZUMAB [Suspect]
     Indication: BREAST CANCER
     Dosage: 405 MG, Q3W
     Route: 042
     Dates: start: 20081202
  2. NO STUDY DRUG ADMINISTERED [Suspect]
  3. EPIRUBICIN [Suspect]
     Indication: BREAST CANCER
     Dosage: 1620 MG, Q3W
     Route: 042
     Dates: start: 20081202
  4. CYCLOPHOSPHAMIDE [Suspect]
     Indication: BREAST CANCER
     Dosage: 1080 MG, Q3W
     Route: 042
     Dates: start: 20080202
  5. DOCETAXEL [Suspect]
     Indication: BREAST CANCER
     Dosage: 180 MG, Q3W
     Route: 042
     Dates: start: 20090302

REACTIONS (1)
  - NERVOUS SYSTEM DISORDER [None]
